FAERS Safety Report 9799977 (Version 1)
Quarter: 2014Q1

REPORT INFORMATION
  Report Type: Spontaneous
  Country: US (occurrence: US)
  Receive Date: 20140106
  Receipt Date: 20140106
  Transmission Date: 20141002
  Serious: No
  Sender: FDA-Public Use
  Company Number: US-GILEAD-2010-0030489

PATIENT
  Age: 77 Year
  Sex: Female

DRUGS (8)
  1. LETAIRIS [Suspect]
     Indication: COR PULMONALE CHRONIC
     Route: 048
     Dates: start: 20100622
  2. SYMBICORT [Concomitant]
  3. COMBIVENT [Concomitant]
  4. BUMETANIDE [Concomitant]
  5. ALBUTEROL [Concomitant]
  6. IPRATROPIUM [Concomitant]
  7. NORVASC [Concomitant]
  8. WARFARIN [Concomitant]

REACTIONS (2)
  - Fatigue [Not Recovered/Not Resolved]
  - Local swelling [Not Recovered/Not Resolved]
